FAERS Safety Report 16817934 (Version 1)
Quarter: 2019Q3

REPORT INFORMATION
  Report Type: Other
  Country: CN (occurrence: CN)
  Receive Date: 20190917
  Receipt Date: 20190917
  Transmission Date: 20191005
  Serious: Yes (Death)
  Sender: FDA-Public Use
  Company Number: CN-AGG-08-2019-2066

PATIENT

DRUGS (4)
  1. IODIXANOL. [Concomitant]
     Active Substance: IODIXANOL
     Route: 040
  2. AGGRASTAT [Suspect]
     Active Substance: TIROFIBAN HYDROCHLORIDE
     Indication: ANTIPLATELET THERAPY
     Dosage: INFUSION 50 MCG/MIN OF 50 MCG/ML CONCENTRATION
     Route: 041
  3. HEPARIN [Concomitant]
     Active Substance: HEPARIN SODIUM
     Dosage: THE GUIDING CATHETER WAS FLUSHED CONTINUOUSLY WITH HEPARINIZED SALINE (5000 U/L)
     Route: 013
  4. DEXMEDETOMIDINE HYDROCHLORIDE. [Concomitant]
     Active Substance: DEXMEDETOMIDINE HYDROCHLORIDE
     Dosage: 1 MCG/KG (4MCG/ML)
     Route: 042

REACTIONS (1)
  - Death [Fatal]
